FAERS Safety Report 6781832-1 (Version None)
Quarter: 2010Q2

REPORT INFORMATION
  Report Type: 
  Country: None (occurrence: None)
  Receive Date: 20100618
  Receipt Date: 20100618
  Transmission Date: 20101027
  Serious: Yes (Other)
  Sender: FDA-Public Use
  Company Number: None

PATIENT

DRUGS (1)
  1. NITROGEN N/A AIRGAS CHATTANOOGA [Suspect]
     Indication: SURGERY
     Dates: start: 20100615, end: 20100617

REACTIONS (5)
  - ACCIDENTAL EXPOSURE [None]
  - COUGH [None]
  - DYSPNOEA [None]
  - EYE IRRITATION [None]
  - MEDICAL DEVICE COMPLICATION [None]
